FAERS Safety Report 9910751 (Version 1)
Quarter: 2014Q1

REPORT INFORMATION
  Report Type: Spontaneous
  Country: CA (occurrence: CA)
  Receive Date: 20140219
  Receipt Date: 20140219
  Transmission Date: 20141002
  Serious: Yes (Hospitalization, Other)
  Sender: FDA-Public Use
  Company Number: CA-WATSON-2014-02606

PATIENT
  Age: 47 Year
  Sex: Female

DRUGS (6)
  1. ARIPIPRAZOLE (UNKNOWN) [Suspect]
     Indication: SCHIZOPHRENIA
     Dosage: 20 MG, DAILY
     Route: 065
     Dates: start: 2010
  2. ARIPIPRAZOLE (UNKNOWN) [Suspect]
     Dosage: 2 MG, DAILY GRADUALLY INCREASED TO 20 MG/DAY OVER 3 WEEKS
     Route: 065
     Dates: start: 2010
  3. FLUOXETINE (UNKNOWN) [Suspect]
     Indication: SCHIZOPHRENIA
     Dosage: 60 MG, DAILY
     Route: 065
     Dates: start: 1992
  4. FLUOXETINE (UNKNOWN) [Suspect]
     Dosage: 20 MG, DAILY
     Route: 065
     Dates: start: 1992
  5. LOXAPINE [Concomitant]
     Indication: SCHIZOPHRENIA
     Dosage: 25 MG, DAILY
     Route: 065
  6. PIPOTIAZINE PALMITATE [Concomitant]
     Indication: SCHIZOPHRENIA
     Dosage: 100 MG, ONCE A MONTH
     Route: 030

REACTIONS (1)
  - Mania [Unknown]
